FAERS Safety Report 8781146 (Version 2)
Quarter: 2012Q4

REPORT INFORMATION
  Report Type: 
  Country: CA (occurrence: CA)
  Receive Date: 20120913
  Receipt Date: 20121026
  Transmission Date: 20130627
  Serious: Yes (Death, Other)
  Sender: FDA-Public Use
  Company Number: CA-BAYER-2012-095094

PATIENT

DRUGS (1)
  1. KOGENATE [Suspect]

REACTIONS (3)
  - Unevaluable event [None]
  - Surgery [None]
  - Death [Fatal]
